FAERS Safety Report 7000514-4 (Version None)
Quarter: 2010Q3

REPORT INFORMATION
  Report Type: 
  Country: None (occurrence: None)
  Receive Date: 20100920
  Receipt Date: 20090818
  Transmission Date: 20110219
  Serious: No
  Sender: FDA-Public Use
  Company Number: US-ASTRAZENECA-2007UW06094

PATIENT
  Age: 513 Month
  Sex: Female
  Weight: 61.2 kg

DRUGS (38)
  1. SEROQUEL [Suspect]
     Indication: BIPOLAR DISORDER
     Route: 048
     Dates: start: 20030801, end: 20051101
  2. SEROQUEL [Suspect]
     Indication: DEPRESSION
     Route: 048
     Dates: start: 20030801, end: 20051101
  3. SEROQUEL [Suspect]
     Dosage: 25MG-200MG
     Route: 048
     Dates: start: 20030812
  4. SEROQUEL [Suspect]
     Dosage: 25MG-200MG
     Route: 048
     Dates: start: 20030812
  5. RISPERDAL [Concomitant]
     Indication: DEPRESSION
     Route: 065
     Dates: start: 20041201, end: 20060101
  6. TOPAMAX [Concomitant]
     Route: 048
  7. TOPAMAX [Concomitant]
     Route: 048
     Dates: start: 20010101, end: 20050101
  8. FLUOXETINE [Concomitant]
     Dosage: 20MG-40MG
     Route: 048
  9. LIPITOR [Concomitant]
     Route: 048
  10. TEQUIN [Concomitant]
     Route: 048
  11. METFORMIN [Concomitant]
     Route: 048
  12. BENZONATATE [Concomitant]
     Route: 048
  13. DURAPHEN [Concomitant]
     Route: 065
  14. WELLBUTRIN [Concomitant]
     Dosage: 150-300MG
     Route: 048
  15. STAFLEX [Concomitant]
     Dosage: 60MG-500MG
     Route: 048
  16. AMOXICILLIN [Concomitant]
     Route: 048
  17. MUPIROCIN [Concomitant]
     Route: 061
  18. CELEBREX [Concomitant]
     Route: 048
  19. MINOCYCLINE HCL [Concomitant]
     Route: 048
  20. REMERON [Concomitant]
     Dosage: 15MG-30MG
     Route: 048
  21. PRILOSEC [Concomitant]
     Route: 048
  22. PAROXETINE [Concomitant]
     Route: 048
  23. LEXAPRO [Concomitant]
     Dosage: 10MG-20MG
     Route: 048
  24. GABAPENTIN [Concomitant]
     Route: 048
  25. GABAPENTIN [Concomitant]
     Route: 048
  26. CLONAZEPAM [Concomitant]
     Route: 048
  27. ADVAIR DISKUS 100/50 [Concomitant]
     Dosage: 250MG,50MG
     Route: 048
  28. BENICAR [Concomitant]
     Route: 048
  29. TRAZODONE HCL [Concomitant]
     Route: 048
  30. TRAZODONE HCL [Concomitant]
     Route: 048
     Dates: start: 20010101
  31. NITROFUR [Concomitant]
     Route: 048
  32. VANCOMYCIN [Concomitant]
     Route: 065
  33. ZOSYN [Concomitant]
     Route: 065
  34. PREMARIN [Concomitant]
     Route: 048
  35. ABILIFY [Concomitant]
     Dates: start: 20080701, end: 20080801
  36. WELLBUTRIN XL [Concomitant]
  37. NEURONTIN [Concomitant]
     Dates: start: 20010101
  38. VISTARIL [Concomitant]
     Dates: start: 20080601

REACTIONS (2)
  - OBESITY [None]
  - TYPE 2 DIABETES MELLITUS [None]
